APPROVED DRUG PRODUCT: CINACALCET HYDROCHLORIDE
Active Ingredient: CINACALCET HYDROCHLORIDE
Strength: EQ 30MG BASE
Dosage Form/Route: TABLET;ORAL
Application: A203422 | Product #001
Applicant: RISING PHARMA HOLDINGS INC
Approved: Oct 16, 2018 | RLD: No | RS: No | Type: DISCN